FAERS Safety Report 5719670-0 (Version None)
Quarter: 2008Q2

REPORT INFORMATION
  Report Type: 
  Country: None (occurrence: None)
  Receive Date: 20080425
  Receipt Date: 20080425
  Transmission Date: 20081010
  Serious: Yes (Hospitalization)
  Sender: FDA-Public Use
  Company Number: None

PATIENT
  Age: 83 Year
  Sex: Male

DRUGS (2)
  1. HYDROXYUREA [Suspect]
     Dosage: 500 MG BID PO
     Route: 048
     Dates: start: 20010101, end: 20080325
  2. ANAGRELIDE HCL [Suspect]
     Dosage: 1.5 MG BID PO
     Route: 048
     Dates: start: 20080118, end: 20080325

REACTIONS (5)
  - ANAEMIA [None]
  - HAEMATOCHEZIA [None]
  - HAEMORRHOIDS [None]
  - LEUKOPENIA [None]
  - PNEUMONIA [None]
